FAERS Safety Report 18500600 (Version 1)
Quarter: 2020Q4

REPORT INFORMATION
  Report Type: Spontaneous
  Country: US (occurrence: US)
  Receive Date: 20201112
  Receipt Date: 20201112
  Transmission Date: 20210114
  Serious: No
  Sender: FDA-Public Use
  Company Number: None

PATIENT
  Age: 81 Year
  Sex: Male
  Weight: 71.1 kg

DRUGS (7)
  1. ASPIRIN. [Concomitant]
     Active Substance: ASPIRIN
  2. FUROSEMIDE. [Concomitant]
     Active Substance: FUROSEMIDE
  3. CARVEDILOL. [Concomitant]
     Active Substance: CARVEDILOL
  4. ISOSORBIDE. [Concomitant]
     Active Substance: ISOSORBIDE
  5. INLYTA [Suspect]
     Active Substance: AXITINIB
     Indication: RENAL CANCER
     Route: 048
     Dates: start: 20200709
  6. ACETAMINOPHEN. [Concomitant]
     Active Substance: ACETAMINOPHEN
  7. BENADRYL [Concomitant]
     Active Substance: DIPHENHYDRAMINE HYDROCHLORIDE

REACTIONS (9)
  - Sleep disorder [None]
  - Decreased appetite [None]
  - Dry mouth [None]
  - Pain of skin [None]
  - Skin disorder [None]
  - Abdominal discomfort [None]
  - Diarrhoea [None]
  - Eye discharge [None]
  - Dysgeusia [None]

NARRATIVE: CASE EVENT DATE: 20201112
